FAERS Safety Report 17979932 (Version 1)
Quarter: 2020Q3

REPORT INFORMATION
  Report Type: Spontaneous
  Country: FR (occurrence: FR)
  Receive Date: 20200703
  Receipt Date: 20200703
  Transmission Date: 20201103
  Serious: Yes (Other)
  Sender: FDA-Public Use
  Company Number: FR-TEVA-2020-FR-1794197

PATIENT
  Age: 65 Year
  Sex: Female

DRUGS (3)
  1. AKINETON [Interacting]
     Active Substance: BIPERIDEN HYDROCHLORIDE
     Indication: PARKINSONISM
     Dosage: 4MG
     Route: 048
     Dates: start: 20200410, end: 20200505
  2. DIAZEPAM TEVA [Suspect]
     Active Substance: DIAZEPAM
     Indication: PSYCHIATRIC SYMPTOM
     Dosage: 15MG
     Route: 048
     Dates: start: 20200420, end: 20200505
  3. TERCIAN [Interacting]
     Active Substance: CYAMEMAZINE
     Indication: MENTAL DISORDER
     Dosage: 240MG
     Route: 048
     Dates: start: 20200420, end: 20200505

REACTIONS (2)
  - Drug interaction [Unknown]
  - Faecaloma [Recovered/Resolved]

NARRATIVE: CASE EVENT DATE: 20200504
